FAERS Safety Report 14457829 (Version 6)
Quarter: 2018Q2

REPORT INFORMATION
  Report Type: Spontaneous
  Country: IE (occurrence: IE)
  Receive Date: 20180130
  Receipt Date: 20180608
  Transmission Date: 20180711
  Serious: Yes (Death, Hospitalization, Other)
  Sender: FDA-Public Use
  Company Number: IE-JNJFOC-20180134688

PATIENT
  Age: 30 Year
  Sex: Female

DRUGS (5)
  1. NUROFEN [Suspect]
     Active Substance: IBUPROFEN
     Indication: PRODUCT USED FOR UNKNOWN INDICATION
     Route: 065
  2. METHADONE [Interacting]
     Active Substance: METHADONE HYDROCHLORIDE
     Indication: PRODUCT USED FOR UNKNOWN INDICATION
     Route: 048
  3. TRAMADOL HYDROCHLORIDE. [Suspect]
     Active Substance: TRAMADOL HYDROCHLORIDE
     Indication: PRODUCT USED FOR UNKNOWN INDICATION
     Route: 048
  4. PREGABALIN. [Interacting]
     Active Substance: PREGABALIN
     Indication: PRODUCT USED FOR UNKNOWN INDICATION
     Route: 048
  5. NUROFEN PLUS [Concomitant]
     Active Substance: CODEINE PHOSPHATE\IBUPROFEN
     Route: 065

REACTIONS (11)
  - Overdose [Fatal]
  - Fall [Unknown]
  - Mental disorder [Unknown]
  - Cyanosis [Fatal]
  - Death [Fatal]
  - Coma [Fatal]
  - Toxicity to various agents [Fatal]
  - Potentiating drug interaction [Fatal]
  - Drug dependence [Unknown]
  - Suicidal ideation [Unknown]
  - Limb injury [Unknown]

NARRATIVE: CASE EVENT DATE: 20170901
